FAERS Safety Report 17572291 (Version 1)
Quarter: 2020Q1

REPORT INFORMATION
  Report Type: Spontaneous
  Country: US (occurrence: US)
  Receive Date: 20200323
  Receipt Date: 20200323
  Transmission Date: 20200409
  Serious: Yes (Other)
  Sender: FDA-Public Use
  Company Number: US-BECTON DICKINSON-2020BDN00102

PATIENT
  Sex: Female

DRUGS (5)
  1. 4FR D/L POWERPICC PROVENA 3CG [Suspect]
     Active Substance: DEVICE
  2. BIOPATCH DRESSING W/CHG [Suspect]
     Active Substance: CHLORHEXIDINE GLUCONATE
     Dosage: 1^ DISK, 4 MM OPENING
     Dates: start: 20200227
  3. CHLORAPREP [Suspect]
     Active Substance: CHLORHEXIDINE GLUCONATE\ISOPROPYL ALCOHOL
     Indication: INFECTION PROPHYLAXIS
     Dosage: UNK
     Route: 061
     Dates: start: 20200227, end: 20200227
  4. CHLORAPREP WITH TINT [Suspect]
     Active Substance: CHLORHEXIDINE GLUCONATE\ISOPROPYL ALCOHOL
     Indication: INFECTION PROPHYLAXIS
     Dosage: UNK
     Route: 061
     Dates: start: 20200227, end: 20200227
  5. LIDOCAINE. [Suspect]
     Active Substance: LIDOCAINE
     Dosage: 5 ML
     Dates: start: 20200227

REACTIONS (2)
  - Complication of device insertion [Recovered/Resolved]
  - Foreign body [Recovered/Resolved]

NARRATIVE: CASE EVENT DATE: 20200227
